FAERS Safety Report 4566812-9 (Version None)
Quarter: 2005Q1

REPORT INFORMATION
  Report Type: 
  Country: None (occurrence: None)
  Receive Date: 20050126
  Receipt Date: 20050107
  Transmission Date: 20050727
  Serious: Yes (Death, Hospitalization, Other)
  Sender: FDA-Public Use
  Company Number: USA040876003

PATIENT
  Age: 66 Year
  Sex: Female
  Weight: 124 kg

DRUGS (27)
  1. HUMATROPE [Suspect]
     Indication: GROWTH HORMONE DEFICIENCY
     Dosage: 0.3 MG/1 DAY
     Dates: start: 20030620, end: 20040805
  2. GLUCOVANCE [Concomitant]
  3. SYNTHYROID (LEVOTHYROXINE SODIUM) [Concomitant]
  4. DEMADEX [Concomitant]
  5. ZYRTEC [Concomitant]
  6. COZAAR [Concomitant]
  7. EFFEXOR [Concomitant]
  8. IMDUR [Concomitant]
  9. TOPROL-XL [Concomitant]
  10. ZOCOR (SIMVASTATIN RATIOPHARM) [Concomitant]
  11. ACETYLSALICYLIC ACID SRT [Concomitant]
  12. TRICOR [Concomitant]
  13. COUMADIN [Concomitant]
  14. FLONASE [Concomitant]
  15. 1-ALPHA-HYDROXYCHOLECALCIFEROL [Concomitant]
  16. POTASSIUM CHLORIDE [Concomitant]
  17. REMICADE [Concomitant]
  18. PEPCID [Concomitant]
  19. SEROQUEL [Concomitant]
  20. TYLENOL [Concomitant]
  21. MULTI-VITAMINS [Concomitant]
  22. TYLENOL [Concomitant]
  23. HYDROXYCHLOROQUINE SULFATE [Concomitant]
  24. SKELAXIN [Concomitant]
  25. IRON [Concomitant]
  26. ACTONEL [Concomitant]
  27. PROCRIT (ERYTHROPOIETIN) [Concomitant]

REACTIONS (22)
  - ABSCESS [None]
  - ANAEMIA [None]
  - BLOOD ALKALINE PHOSPHATASE INCREASED [None]
  - DEPRESSION [None]
  - DIZZINESS [None]
  - FLUID OVERLOAD [None]
  - HEPATIC MASS [None]
  - LEUKOCYTOSIS [None]
  - LOBAR PNEUMONIA [None]
  - LYMPHADENOPATHY [None]
  - LYMPHOMA [None]
  - NECK MASS [None]
  - PERITONEAL NEOPLASM [None]
  - PRURITUS [None]
  - PSEUDOMONAS INFECTION [None]
  - PULSE ABSENT [None]
  - PYREXIA [None]
  - REFUSAL OF TREATMENT BY PATIENT [None]
  - RENAL FAILURE ACUTE [None]
  - RESPIRATORY ARREST [None]
  - RESPIRATORY FAILURE [None]
  - SUPERINFECTION [None]
